FAERS Safety Report 21609664 (Version 2)
Quarter: 2022Q4

REPORT INFORMATION
  Report Type: Report from Study
  Country: US (occurrence: US)
  Receive Date: 20221117
  Receipt Date: 20221202
  Transmission Date: 20230112
  Serious: No
  Sender: FDA-Public Use
  Company Number: US-BRISTOL-MYERS SQUIBB COMPANY-2022-136953

PATIENT
  Age: 77 Year
  Sex: Female

DRUGS (10)
  1. CAMZYOS [Suspect]
     Active Substance: MAVACAMTEN
     Indication: Hypertrophic cardiomyopathy
     Route: 048
     Dates: start: 20221007
  2. CAMZYOS [Suspect]
     Active Substance: MAVACAMTEN
     Dosage: FREQUENCY: DAILY
     Route: 048
     Dates: start: 202209
  3. CAMZYOS [Suspect]
     Active Substance: MAVACAMTEN
     Route: 048
     Dates: start: 20221013
  4. CAMZYOS [Suspect]
     Active Substance: MAVACAMTEN
     Route: 048
  5. PROTONIX [Concomitant]
     Active Substance: PANTOPRAZOLE SODIUM
     Indication: Product used for unknown indication
     Route: 065
  6. GLUPHAGE [Concomitant]
     Indication: Product used for unknown indication
     Route: 065
  7. LASIX [Concomitant]
     Active Substance: FUROSEMIDE
     Indication: Product used for unknown indication
     Route: 065
  8. HYDROCHLOROTHIAZIDE [Concomitant]
     Active Substance: HYDROCHLOROTHIAZIDE
     Indication: Product used for unknown indication
     Route: 065
  9. ASPIRIN [Concomitant]
     Active Substance: ASPIRIN
     Indication: Product used for unknown indication
     Route: 065
  10. ATORVASTATIN [Concomitant]
     Active Substance: ATORVASTATIN
     Indication: Product used for unknown indication
     Route: 065

REACTIONS (3)
  - Headache [Unknown]
  - Blood pressure increased [Unknown]
  - Chest pain [Unknown]

NARRATIVE: CASE EVENT DATE: 20221111
